FAERS Safety Report 10232643 (Version 1)
Quarter: 2014Q2

REPORT INFORMATION
  Report Type: Spontaneous
  Country: US (occurrence: None)
  Receive Date: 20140611
  Receipt Date: 20140611
  Transmission Date: 20141212
  Serious: Yes (Life-Threatening, Disabling)
  Sender: FDA-Public Use
  Company Number: None

PATIENT
  Age: 56 Year
  Sex: Female
  Weight: 77.11 kg

DRUGS (1)
  1. PROTOPIC [Suspect]
     Indication: ECZEMA
     Dosage: APPLY TWICE DAILY OR WHEN NEED, TWICE DAILY, APPLY TO A SURFACE, USUALLY THE SKIN
     Route: 061
     Dates: start: 20090815, end: 20120215

REACTIONS (1)
  - Intraductal proliferative breast lesion [None]
